FAERS Safety Report 18113275 (Version 2)
Quarter: 2020Q3

REPORT INFORMATION
  Report Type: Spontaneous
  Country: US (occurrence: US)
  Receive Date: 20200805
  Receipt Date: 20200807
  Transmission Date: 20201103
  Serious: No
  Sender: FDA-Public Use
  Company Number: US-PFIZER INC-2020294847

PATIENT
  Age: 58 Year
  Sex: Female
  Weight: 64.86 kg

DRUGS (2)
  1. TIMOLOL MALEATE. [Suspect]
     Active Substance: TIMOLOL MALEATE
     Indication: GLAUCOMA
     Dosage: UNK, 1X/DAY (TAKES TIMOLOL IN THE MORNINGS)
  2. LATANOPROST. [Suspect]
     Active Substance: LATANOPROST
     Dosage: UNK, 1X/DAY (TAKES THE LATANOPROST OR THE XALATAN AT NIGHT)
     Dates: start: 2018

REACTIONS (2)
  - Eye irritation [Unknown]
  - Eye pruritus [Unknown]

NARRATIVE: CASE EVENT DATE: 2018
